FAERS Safety Report 9412351 (Version 13)
Quarter: 2014Q1

REPORT INFORMATION
  Report Type: Spontaneous
  Country: US (occurrence: US)
  Receive Date: 20130722
  Receipt Date: 20140303
  Transmission Date: 20141002
  Serious: Yes (Death, Hospitalization, Other)
  Sender: FDA-Public Use
  Company Number: US-PFIZER INC-2013210794

PATIENT
  Age: 77 Year
  Sex: Male
  Weight: 73.47 kg

DRUGS (16)
  1. SUTENT [Suspect]
     Indication: METASTATIC RENAL CELL CARCINOMA
     Dosage: 50 MG, CYCLIC (ONCE A DAY 28 DAYS ON, 14 DAYS OFF)
     Route: 048
     Dates: start: 20130628, end: 20130712
  2. SUTENT [Suspect]
     Dosage: 50 MG, 1X/DAY
     Route: 048
     Dates: start: 20130715, end: 201307
  3. SUTENT [Suspect]
     Dosage: 50 MG, UNK
     Route: 048
     Dates: start: 20130722, end: 201307
  4. SUTENT [Suspect]
     Dosage: 50 MG, 1X/DAY
     Route: 048
     Dates: start: 2013, end: 2013
  5. SUTENT [Suspect]
     Dosage: 50 MG, CYCLIC (2 WEEKS ON AND 1 WEEK OFF)
     Route: 048
     Dates: start: 20131009
  6. ZOCOR [Concomitant]
     Indication: BLOOD CHOLESTEROL INCREASED
     Dosage: UNK
     Dates: end: 20130712
  7. PREDNISONE [Concomitant]
     Dosage: UNK, 1X/DAY
     Dates: end: 20130712
  8. ZOLOFT [Concomitant]
     Dosage: UNK
     Dates: end: 20130712
  9. CARAFATE [Concomitant]
     Dosage: UNK
  10. PROTONIX [Concomitant]
     Dosage: UNK
  11. BUDESONIDE [Concomitant]
     Dosage: UNK
  12. LIDOCAINE VISCOUS [Concomitant]
     Dosage: UNK
  13. PERCOCET [Concomitant]
     Dosage: UNK
  14. OXYCODONE [Concomitant]
     Dosage: UNK
  15. MAGIC MOUTHWASH [Concomitant]
     Dosage: UNK
  16. LOVENOX [Concomitant]
     Dosage: UNK, STOPPED

REACTIONS (38)
  - Death [Fatal]
  - Respiratory failure [Unknown]
  - Pulmonary embolism [Recovered/Resolved]
  - Chest pain [Unknown]
  - Anaemia [Unknown]
  - Haematoma [Unknown]
  - Oesophageal ulcer [Unknown]
  - Duodenitis [Unknown]
  - Candida infection [Recovering/Resolving]
  - Second primary malignancy [Unknown]
  - Lung neoplasm malignant [Unknown]
  - Atrial fibrillation [Unknown]
  - Haemorrhagic disorder [Unknown]
  - Glossodynia [Not Recovered/Not Resolved]
  - Weight decreased [Not Recovered/Not Resolved]
  - Decreased appetite [Recovered/Resolved]
  - Abdominal pain upper [Recovered/Resolved]
  - Diarrhoea [Recovering/Resolving]
  - Oral pain [Not Recovered/Not Resolved]
  - Red blood cell count decreased [Unknown]
  - Epistaxis [Unknown]
  - Blood pressure increased [Unknown]
  - Blister [Not Recovered/Not Resolved]
  - Nausea [Unknown]
  - Gastrointestinal sounds abnormal [Recovered/Resolved]
  - Dysphonia [Unknown]
  - Sluggishness [Recovered/Resolved]
  - Skin exfoliation [Recovered/Resolved]
  - Dyspnoea [Unknown]
  - Fall [Unknown]
  - Pain in extremity [Recovered/Resolved]
  - Stomatitis [Not Recovered/Not Resolved]
  - Gait disturbance [Unknown]
  - Asthenia [Unknown]
  - Fatigue [Unknown]
  - Blister [Unknown]
  - Pain in extremity [Unknown]
  - Depressed mood [Unknown]
